FAERS Safety Report 11827260 (Version 2)
Quarter: 2015Q4

REPORT INFORMATION
  Report Type: Spontaneous
  Country: GB (occurrence: GB)
  Receive Date: 20151211
  Receipt Date: 20151223
  Transmission Date: 20160305
  Serious: Yes (Other)
  Sender: FDA-Public Use
  Company Number: GB-009507513-1512GBR002691

PATIENT
  Age: 35 Year
  Sex: Male
  Weight: 98 kg

DRUGS (2)
  1. CITALOPRAM [Concomitant]
     Active Substance: CITALOPRAM HYDROBROMIDE
  2. MIRTAZAPINE. [Suspect]
     Active Substance: MIRTAZAPINE
     Indication: DEPRESSION
     Dosage: 15 MG, UNK
     Route: 048
     Dates: start: 20151125, end: 20151126

REACTIONS (5)
  - Stress [Recovering/Resolving]
  - Dyskinesia [Recovering/Resolving]
  - Dizziness [Recovering/Resolving]
  - Apathy [Recovering/Resolving]
  - Aggression [Recovering/Resolving]

NARRATIVE: CASE EVENT DATE: 20151125
